FAERS Safety Report 6754539-4 (Version None)
Quarter: 2010Q2

REPORT INFORMATION
  Report Type: 
  Country: None (occurrence: None)
  Receive Date: 20100524
  Receipt Date: 20100317
  Transmission Date: 20101027
  Serious: No
  Sender: FDA-Public Use
  Company Number: 009079

PATIENT
  Sex: Male
  Weight: 104.5 kg

DRUGS (5)
  1. CIMZIA [Suspect]
     Indication: RHEUMATOID ARTHRITIS
     Dosage: 200 MG 1X/2 SUBCUTANEOUS
     Route: 058
     Dates: start: 20090101
  2. METHOTREXATE [Concomitant]
  3. PLAQUENIL [Concomitant]
  4. FOLIC ACID [Concomitant]
  5. PANTOPRAZOLE [Concomitant]

REACTIONS (1)
  - PNEUMONIA [None]
